FAERS Safety Report 8608770-3 (Version None)
Quarter: 2012Q3

REPORT INFORMATION
  Report Type: 
  Country: None (occurrence: None)
  Receive Date: 20120809
  Receipt Date: 20120809
  Transmission Date: 20120928
  Serious: Yes (Other)
  Sender: FDA-Public Use
  Company Number: None

PATIENT
  Age: 26 Year
  Sex: Female
  Weight: 65.7716 kg

DRUGS (2)
  1. CELEXA [Suspect]
     Indication: OBSESSIVE-COMPULSIVE DISORDER
     Dosage: 20MG QD PO
     Route: 048
     Dates: start: 20120720, end: 20120807
  2. CELEXA [Suspect]
     Indication: ANXIETY
     Dosage: 20MG QD PO
     Route: 048
     Dates: start: 20120720, end: 20120807

REACTIONS (1)
  - ERYTHEMA MULTIFORME [None]
